FAERS Safety Report 8052403-4 (Version None)
Quarter: 2012Q1

REPORT INFORMATION
  Report Type: 
  Country: None (occurrence: None)
  Receive Date: 20120118
  Receipt Date: 20120112
  Transmission Date: 20120608
  Serious: Yes (Other)
  Sender: FDA-Public Use
  Company Number: US-PFIZER INC-2012009897

PATIENT
  Sex: Female
  Weight: 62.585 kg

DRUGS (5)
  1. CHANTIX [Suspect]
     Indication: SMOKING CESSATION THERAPY
     Dosage: UNK
     Dates: start: 20020101
  2. NAPROXEN [Concomitant]
     Dosage: 500 MG, UNK
  3. EFFEXOR [Concomitant]
  4. SIMVASTATIN [Concomitant]
     Dosage: 40 MG, UNK
  5. CHANTIX [Suspect]
     Dosage: 0.5 MG, DAILY
     Route: 048
     Dates: start: 20120101

REACTIONS (7)
  - NERVE INJURY [None]
  - AGEUSIA [None]
  - ACCIDENT [None]
  - ABNORMAL DREAMS [None]
  - TOBACCO USER [None]
  - FACE INJURY [None]
  - ANOSMIA [None]
